FAERS Safety Report 8760089 (Version 1)
Quarter: 2012Q4

REPORT INFORMATION
  Report Type: Report from Study
  Country: US (occurrence: US)
  Receive Date: 20120829
  Receipt Date: 20120829
  Transmission Date: 20130627
  Serious: Yes (Hospitalization, Other)
  Sender: FDA-Public Use
  Company Number: US-ABBOTT-12P-163-0971081-00

PATIENT
  Age: 59 None
  Sex: Female
  Weight: 66.74 kg

DRUGS (8)
  1. HUMIRA 40 MG/0.8 ML PEN [Suspect]
     Indication: RHEUMATOID ARTHRITIS
     Route: 058
     Dates: start: 200809, end: 2009
  2. HUMIRA 40 MG/0.8 ML PEN [Suspect]
     Route: 058
     Dates: start: 2009, end: 201201
  3. HUMIRA 40 MG/0.8 ML PEN [Suspect]
     Route: 058
     Dates: start: 201201
  4. HUMIRA 40 MG/0.8 ML PEN [Suspect]
     Route: 058
     Dates: start: 20120811
  5. HUMIRA 40 MG/0.8 ML PEN [Suspect]
     Route: 058
  6. HUMIRA 40 MG/0.8 ML PEN [Suspect]
     Route: 058
     Dates: end: 201204
  7. LEVOTHYROXINE [Concomitant]
     Indication: HYPOTHYROIDISM
  8. IRON [Concomitant]
     Indication: ANAEMIA

REACTIONS (10)
  - Peripheral vascular disorder [Unknown]
  - Osteonecrosis [Recovered/Resolved]
  - Rheumatoid arthritis [Not Recovered/Not Resolved]
  - Pain [Recovered/Resolved]
  - Gait disturbance [Recovered/Resolved]
  - Suture related complication [Recovered/Resolved]
  - Musculoskeletal pain [Not Recovered/Not Resolved]
  - Rheumatoid arthritis [Not Recovered/Not Resolved]
  - Cyst [Recovered/Resolved]
  - Rheumatoid arthritis [Unknown]
